FAERS Safety Report 19236652 (Version 1)
Quarter: 2021Q2

REPORT INFORMATION
  Report Type: Spontaneous
  Country: US (occurrence: US)
  Receive Date: 20210507
  Receipt Date: 20210507
  Transmission Date: 20210717
  Serious: No
  Sender: FDA-Public Use
  Company Number: None

PATIENT
  Sex: Female

DRUGS (1)
  1. AMBRISENTAN [Suspect]
     Active Substance: AMBRISENTAN
     Indication: PULMONARY HYPERTENSION

REACTIONS (5)
  - Blood potassium decreased [None]
  - Cardiac disorder [None]
  - Fluid retention [None]
  - Cellulitis [None]
  - Dyspnoea [None]
